FAERS Safety Report 11302559 (Version 1)
Quarter: 2015Q3

REPORT INFORMATION
  Report Type: Spontaneous
  Country: GB (occurrence: GB)
  Receive Date: 20150723
  Receipt Date: 20150723
  Transmission Date: 20151125
  Serious: Yes (Hospitalization)
  Sender: FDA-Public Use
  Company Number: GB-DEXPHARM-20150764

PATIENT
  Age: 78 Year
  Sex: Female

DRUGS (6)
  1. TRAZODONE [Suspect]
     Active Substance: TRAZODONE HYDROCHLORIDE
     Route: 048
     Dates: end: 20150618
  2. COLECALCIFEROL [Suspect]
     Active Substance: CHOLECALCIFEROL
     Route: 048
     Dates: end: 20150624
  3. ENALAPRIL [Suspect]
     Active Substance: ENALAPRIL
     Dates: end: 20150624
  4. OMEPRAZOLE. [Suspect]
     Active Substance: OMEPRAZOLE
     Route: 048
     Dates: end: 20150624
  5. FLUOXETINE [Suspect]
     Active Substance: FLUOXETINE\FLUOXETINE HYDROCHLORIDE
     Indication: DEPRESSION
     Route: 048
     Dates: start: 20150618, end: 20150624
  6. SIMVASTATIN. [Suspect]
     Active Substance: SIMVASTATIN
     Dates: end: 20150624

REACTIONS (3)
  - Hyponatraemia [Recovering/Resolving]
  - Confusional state [Recovering/Resolving]
  - Hypotension [Unknown]

NARRATIVE: CASE EVENT DATE: 20150624
